FAERS Safety Report 24529043 (Version 3)
Quarter: 2024Q4

REPORT INFORMATION
  Report Type: Spontaneous
  Country: KR (occurrence: KR)
  Receive Date: 20241021
  Receipt Date: 20241108
  Transmission Date: 20250115
  Serious: Yes (Hospitalization)
  Sender: CHEPLAPHARM
  Company Number: KR-ROCHE-10000101413

PATIENT
  Age: 54 Year
  Sex: Female
  Weight: 49.5 kg

DRUGS (20)
  1. CAPECITABINE [Suspect]
     Active Substance: CAPECITABINE
     Indication: Breast cancer
     Dosage: DATE OF MOST RECENT DOSE (2300 MG) OF STUDY DRUG 2 PRIOR TO SAE ONSET: 13-AUG-2024.
     Route: 048
     Dates: start: 20170720
  2. TRASTUZUMAB [Suspect]
     Active Substance: TRASTUZUMAB
     Indication: Breast cancer
     Dosage: DATE OF MOST RECENT DOSE (384 MG) OF STUDY DRUG 1 PRIOR TO SAE ONSET: 24-SEP-2024
     Route: 042
     Dates: start: 20170720
  3. PERTUZUMAB [Suspect]
     Active Substance: PERTUZUMAB
     Indication: Breast cancer
     Dosage: DATE OF MOST RECENT DOSE (840 MG) OF PERTUZUMAB PRIOR TO SAE ONSET: 24-SEP-2024 AT 11:39.
     Route: 042
     Dates: start: 20170720
  4. MAGNESIUM OXIDE [Concomitant]
     Active Substance: MAGNESIUM OXIDE
  5. PREGABALIN [Concomitant]
     Active Substance: PREGABALIN
  6. ZOLPIDEM [Concomitant]
     Active Substance: ZOLPIDEM TARTRATE
  7. CHLORPHENIRAMINE [Concomitant]
     Active Substance: CHLORPHENIRAMINE
  8. ACETAMINOPHEN [Concomitant]
     Active Substance: ACETAMINOPHEN
  9. CHLORPHENIRAMINE MALEATE [Concomitant]
     Active Substance: CHLORPHENIRAMINE MALEATE
  10. DESOXIMETASONE [Concomitant]
     Active Substance: DESOXIMETASONE
  11. BETADINE [Concomitant]
     Active Substance: POVIDONE-IODINE
  12. AIRCLAN [Concomitant]
  13. EREXIN [Concomitant]
  14. ALBIRA [Concomitant]
  15. LOPMIN [Concomitant]
  16. DEXTROSE [Concomitant]
     Active Substance: DEXTROSE MONOHYDRATE
  17. CEFZOLIN [Concomitant]
  18. GASTER [Concomitant]
     Active Substance: FAMOTIDINE
  19. AMBROXOL [Concomitant]
     Active Substance: AMBROXOL
  20. BUPIVACAINE [Concomitant]
     Active Substance: BUPIVACAINE

REACTIONS (1)
  - Pulmonary mass [Recovered/Resolved]

NARRATIVE: CASE EVENT DATE: 20240903
